FAERS Safety Report 20802428 (Version 1)
Quarter: 2022Q2

REPORT INFORMATION
  Report Type: Spontaneous
  Country: US (occurrence: None)
  Receive Date: 20220509
  Receipt Date: 20220509
  Transmission Date: 20220721
  Serious: Yes (Death)
  Sender: FDA-Public Use
  Company Number: None

PATIENT
  Sex: Male
  Weight: 135.62 kg

DRUGS (1)
  1. APIXABAN [Suspect]
     Active Substance: APIXABAN
     Dosage: 5 MG BID PO?
     Route: 048
     Dates: start: 20220216, end: 20220309

REACTIONS (4)
  - Haematemesis [None]
  - Lethargy [None]
  - Gastric ulcer [None]
  - Therapy cessation [None]
